FAERS Safety Report 6907049-5 (Version None)
Quarter: 2010Q3

REPORT INFORMATION
  Report Type: 
  Country: None (occurrence: None)
  Receive Date: 20100804
  Receipt Date: 20081013
  Transmission Date: 20110219
  Serious: No
  Sender: FDA-Public Use
  Company Number: US-PFIZER INC-2008086055

PATIENT
  Sex: Male
  Weight: 72.7 kg

DRUGS (1)
  1. NARDIL [Suspect]
     Indication: CHRONIC FATIGUE SYNDROME
     Route: 048
     Dates: start: 19880101

REACTIONS (1)
  - NIGHTMARE [None]
